FAERS Safety Report 12865509 (Version 3)
Quarter: 2017Q1

REPORT INFORMATION
  Report Type: Report from Study
  Country: US (occurrence: US)
  Receive Date: 20161020
  Receipt Date: 20170130
  Transmission Date: 20170428
  Serious: No
  Sender: FDA-Public Use
  Company Number: PHEH2016US026931

PATIENT
  Sex: Male

DRUGS (1)
  1. ENTRESTO [Suspect]
     Active Substance: SACUBITRIL\VALSARTAN
     Indication: CARDIAC FAILURE CONGESTIVE
     Dosage: 50 MG, UNK
     Route: 065

REACTIONS (6)
  - Skin ulcer [Unknown]
  - Gout [Unknown]
  - Renal disorder [Unknown]
  - Fluid retention [Unknown]
  - Pain [Unknown]
  - Peripheral swelling [Unknown]
